FAERS Safety Report 16991832 (Version 2)
Quarter: 2019Q4

REPORT INFORMATION
  Report Type: Spontaneous
  Country: US (occurrence: US)
  Receive Date: 20191104
  Receipt Date: 20191217
  Transmission Date: 20200122
  Serious: No
  Sender: FDA-Public Use
  Company Number: US-MTPC-MTDA2019-0076928

PATIENT

DRUGS (2)
  1. RADICAVA [Suspect]
     Active Substance: EDARAVONE
     Indication: AMYOTROPHIC LATERAL SCLEROSIS
     Dosage: 60 MILLIGRAM, QD X 14 DAYS OFF X 14 DAYS
     Route: 042
     Dates: start: 20191028, end: 20191029
  2. RADICAVA [Suspect]
     Active Substance: EDARAVONE
     Dosage: 60 MILLIGRAM QD 10 OUT OF 14 DAYS OFF EACH 28 DAY CYCLE
     Route: 042
     Dates: start: 20191031

REACTIONS (1)
  - Product dose omission [Recovered/Resolved]

NARRATIVE: CASE EVENT DATE: 20191030
